FAERS Safety Report 8838461 (Version 1)
Quarter: 2012Q4

REPORT INFORMATION
  Report Type: 
  Country: US (occurrence: US)
  Receive Date: 20121012
  Receipt Date: 20121012
  Transmission Date: 20130627
  Serious: Yes (Death, Other)
  Sender: FDA-Public Use
  Company Number: CHPA2012US021505

PATIENT
  Age: 90 Year
  Sex: Male

DRUGS (1)
  1. MAALOX TOTAL RELIEF [Suspect]
     Indication: GASTRIC DISORDER
     Dosage: Unk, ON AND OFF
     Route: 048
     Dates: start: 1952, end: 20120501

REACTIONS (4)
  - Death [Fatal]
  - Dementia [Unknown]
  - Diabetes mellitus [Unknown]
  - Off label use [Unknown]
